FAERS Safety Report 5241765-9 (Version None)
Quarter: 2007Q1

REPORT INFORMATION
  Report Type: 
  Country: None (occurrence: None)
  Receive Date: 20070220
  Receipt Date: 20070215
  Transmission Date: 20070707
  Serious: Yes (Death)
  Sender: FDA-Public Use
  Company Number: 2007AP00757

PATIENT
  Age: 85 Year
  Sex: Female

DRUGS (3)
  1. IRESSA [Suspect]
     Indication: NON-SMALL CELL LUNG CANCER
     Route: 048
     Dates: end: 20070131
  2. ASPARA-CA [Concomitant]
  3. GASTER [Concomitant]

REACTIONS (1)
  - HEPATIC FUNCTION ABNORMAL [None]
